FAERS Safety Report 8986287 (Version 3)
Quarter: 2013Q3

REPORT INFORMATION
  Report Type: Report from Study
  Country: US (occurrence: US)
  Receive Date: 20121227
  Receipt Date: 20130808
  Transmission Date: 20140515
  Serious: Yes (Hospitalization)
  Sender: FDA-Public Use
  Company Number: US-ELI_LILLY_AND_COMPANY-US201212006420

PATIENT
  Age: 75 Year
  Sex: Female
  Weight: 57.8 kg

DRUGS (12)
  1. TERIPARATIDE [Suspect]
     Indication: OSTEOPOROSIS
     Dosage: 20 UG, QD
     Route: 058
     Dates: start: 20121126
  2. TERIPARATIDE [Suspect]
     Indication: SENILE OSTEOPOROSIS
     Dosage: 20 UG, QD
     Route: 058
     Dates: start: 20121213, end: 20130722
  3. ZOCOR [Concomitant]
     Dosage: UNK
  4. PRILOSEC [Concomitant]
     Dosage: UNK
  5. CALCIUM [Concomitant]
     Dosage: UNK
  6. FISH OIL [Concomitant]
     Dosage: UNK
  7. MULTIVITAMIN [Concomitant]
     Dosage: UNK
  8. BABY ASPIRIN [Concomitant]
     Dosage: UNK
  9. B COMPLEX [Concomitant]
     Dosage: UNK
  10. VITAMIN D [Concomitant]
     Dosage: UNK
  11. MELOXICAM [Concomitant]
  12. ADVAIR [Concomitant]
     Indication: BRONCHITIS
     Route: 055

REACTIONS (8)
  - Loss of consciousness [Recovered/Resolved]
  - Dehydration [Recovered/Resolved]
  - Fall [Recovered/Resolved]
  - Gastrointestinal infection [Recovered/Resolved]
  - Injection site pain [Unknown]
  - Medication error [Unknown]
  - Laceration [Recovered/Resolved]
  - Paraesthesia [Unknown]
